FAERS Safety Report 7483886-6 (Version None)
Quarter: 2011Q2

REPORT INFORMATION
  Report Type: 
  Country: None (occurrence: None)
  Receive Date: 20110513
  Receipt Date: 20110513
  Transmission Date: 20111010
  Serious: No
  Sender: FDA-Public Use
  Company Number: None

PATIENT
  Age: 78 Year
  Sex: Male
  Weight: 99.7913 kg

DRUGS (2)
  1. TRAZODONE HCL [Concomitant]
  2. ZOLPIDEM [Suspect]
     Indication: INSOMNIA
     Dosage: BEDTIME/PRN P.O. (047)
     Route: 048
     Dates: start: 20110506, end: 20110509

REACTIONS (2)
  - INSOMNIA [None]
  - PARADOXICAL DRUG REACTION [None]
